FAERS Safety Report 11200918 (Version 2)
Quarter: 2015Q3

REPORT INFORMATION
  Report Type: Report from Study
  Country: JP (occurrence: JP)
  Receive Date: 20150618
  Receipt Date: 20150826
  Transmission Date: 20151125
  Serious: No
  Sender: FDA-Public Use
  Company Number: JP-009507513-1506JPN006858

PATIENT
  Age: 70 Year
  Sex: Female
  Weight: 56 kg

DRUGS (3)
  1. REBETOL [Suspect]
     Active Substance: RIBAVIRIN
     Indication: HEPATIC CIRRHOSIS
     Dosage: 600 MG, QD
     Route: 048
     Dates: start: 20130219, end: 20130321
  2. PEGINTRON [Suspect]
     Active Substance: PEGINTERFERON ALFA-2B
     Indication: HEPATIC CIRRHOSIS
     Dosage: 80 MICROGRAM, QW
     Route: 058
     Dates: start: 20130219, end: 20130319
  3. TELAVIC [Suspect]
     Active Substance: TELAPREVIR
     Indication: CHRONIC HEPATITIS C
     Dosage: 750 MG, BID, FORMULATION POR
     Route: 048
     Dates: start: 20130507, end: 20130729

REACTIONS (5)
  - Hyperuricaemia [Recovering/Resolving]
  - Chronic gastritis [Recovering/Resolving]
  - Osteoarthritis [Unknown]
  - Pruritus [Recovering/Resolving]
  - Pyrexia [Recovered/Resolved]

NARRATIVE: CASE EVENT DATE: 20130226
